FAERS Safety Report 17660063 (Version 2)
Quarter: 2020Q2

REPORT INFORMATION
  Report Type: Spontaneous
  Country: US (occurrence: US)
  Receive Date: 20200413
  Receipt Date: 20200508
  Transmission Date: 20200713
  Serious: Yes (Other)
  Sender: FDA-Public Use
  Company Number: US-GLENMARK PHARMACEUTICALS-2020GMK047217

PATIENT
  Age: 41 Year
  Sex: Female

DRUGS (9)
  1. FLUCYTOSINE. [Concomitant]
     Active Substance: FLUCYTOSINE
     Indication: MENINGOENCEPHALITIS AMOEBIC
     Dosage: UNK
     Route: 065
  2. THORAZINE [Concomitant]
     Active Substance: CHLORPROMAZINE
     Indication: MENINGOENCEPHALITIS AMOEBIC
     Dosage: UNK
     Route: 065
  3. MILTEFOSINE [Concomitant]
     Active Substance: MILTEFOSINE
     Indication: MENINGOENCEPHALITIS AMOEBIC
     Dosage: UNK
     Route: 065
  4. AZITHROMYCIN ANHYDROUS. [Concomitant]
     Active Substance: AZITHROMYCIN ANHYDROUS
     Indication: MENINGOENCEPHALITIS AMOEBIC
     Dosage: UNK
     Route: 065
  5. FLUCONAZOLE. [Suspect]
     Active Substance: FLUCONAZOLE
     Indication: BLASTOMYCOSIS
     Dosage: UNK
     Route: 065
  6. SULFAMETHOXAZOLE W/TRIMETHOPRIM [Concomitant]
     Active Substance: SULFAMETHOXAZOLE\TRIMETHOPRIM
     Indication: MENINGOENCEPHALITIS AMOEBIC
     Dosage: UNK
     Route: 065
  7. FLUCONAZOLE. [Suspect]
     Active Substance: FLUCONAZOLE
     Dosage: 800 MILLIGRAM, QD (HIGH DOSE)
     Route: 048
  8. VORICONAZOLE. [Suspect]
     Active Substance: VORICONAZOLE
     Indication: BLASTOMYCOSIS
     Dosage: 300 MILLIGRAM, BID
     Route: 048
  9. AMPHOTERICIN B, LIPOSOME [Concomitant]
     Active Substance: AMPHOTERICIN B
     Indication: BLASTOMYCOSIS
     Dosage: UNK
     Route: 042

REACTIONS (4)
  - Pancytopenia [Recovered/Resolved]
  - Disease progression [Recovered/Resolved]
  - Neutropenia [Recovered/Resolved]
  - Product use in unapproved indication [Unknown]
